FAERS Safety Report 4616693-X (Version None)
Quarter: 2005Q1

REPORT INFORMATION
  Report Type: 
  Country: None (occurrence: None)
  Receive Date: 20050318
  Receipt Date: 20050225
  Transmission Date: 20050727
  Serious: Yes (Hospitalization, Other)
  Sender: FDA-Public Use
  Company Number: USA041080416

PATIENT
  Age: 73 Year
  Sex: Female

DRUGS (12)
  1. FORTEO [Suspect]
     Indication: OSTEOPOROSIS
     Dosage: 20 UG/1 DAY
     Dates: start: 20030731
  2. EVISTA [Suspect]
  3. PREDNISONE [Concomitant]
  4. LASIX [Concomitant]
  5. ANTIHYPERTENSIVE [Concomitant]
  6. PREVACID (LANSORPRAZOLE) [Concomitant]
  7. OXYCONTIN [Concomitant]
  8. ENBREL (ETANEREPT) [Concomitant]
  9. ABLUTEROL [Concomitant]
  10. POTASSIUM CHLORIDE [Concomitant]
  11. SENNA [Concomitant]
  12. MEDROL [Concomitant]

REACTIONS (4)
  - ABDOMINAL PAIN [None]
  - CONSTIPATION [None]
  - DIVERTICULAR PERFORATION [None]
  - INTESTINAL PERFORATION [None]
